FAERS Safety Report 15290403 (Version 1)
Quarter: 2018Q3

REPORT INFORMATION
  Report Type: Spontaneous
  Country: US (occurrence: US)
  Receive Date: 20180817
  Receipt Date: 20180817
  Transmission Date: 20181010
  Serious: Yes (Other)
  Sender: FDA-Public Use
  Company Number: US-JNJFOC-20180817875

PATIENT
  Sex: Female
  Weight: 90.72 kg

DRUGS (9)
  1. LINZESS [Concomitant]
     Active Substance: LINACLOTIDE
     Route: 065
  2. VITAMIN D [Concomitant]
     Active Substance: CHOLECALCIFEROL
     Dosage: 50000 UNITS
     Route: 065
  3. CLONAZEPAM. [Concomitant]
     Active Substance: CLONAZEPAM
     Route: 065
  4. BIOTIN [Concomitant]
     Active Substance: BIOTIN
     Route: 065
  5. KETOCONAZOLE 2% [Suspect]
     Active Substance: KETOCONAZOLE
     Indication: SKIN DISORDER
     Dosage: TWICE OR THREE TIMES A WEEK
     Route: 061
     Dates: start: 2017
  6. ENABLEX [Concomitant]
     Active Substance: DARIFENACIN HYDROBROMIDE
     Route: 065
  7. NEXIUM [Concomitant]
     Active Substance: ESOMEPRAZOLE MAGNESIUM
     Route: 065
  8. LOSARTAN. [Concomitant]
     Active Substance: LOSARTAN
     Route: 065
  9. EXEMESTANE. [Concomitant]
     Active Substance: EXEMESTANE
     Route: 065

REACTIONS (2)
  - Thyroid cancer [Not Recovered/Not Resolved]
  - Nerve injury [Unknown]
